FAERS Safety Report 7713027-9 (Version None)
Quarter: 2011Q3

REPORT INFORMATION
  Report Type: 
  Country: None (occurrence: None)
  Receive Date: 20110826
  Receipt Date: 20110818
  Transmission Date: 20111222
  Serious: Yes (Other)
  Sender: FDA-Public Use
  Company Number: GB-BAXTER-2011BH027111

PATIENT
  Age: 64 Year
  Sex: Male
  Weight: 73 kg

DRUGS (4)
  1. ACETYLSALICYLIC ACID [Concomitant]
     Indication: PRODUCT USED FOR UNKNOWN INDICATION
     Route: 065
  2. ACETAMINOPHEN AND CODEINE PHOSPHATE [Concomitant]
     Indication: PRODUCT USED FOR UNKNOWN INDICATION
     Route: 065
  3. SODIUM CLODRONATE [Concomitant]
     Indication: PRODUCT USED FOR UNKNOWN INDICATION
     Route: 065
  4. MESNA [Suspect]
     Indication: CYSTITIS HAEMORRHAGIC
     Route: 042
     Dates: start: 20110805, end: 20110808

REACTIONS (2)
  - URTICARIA [None]
  - DRUG ERUPTION [None]
